FAERS Safety Report 6429731-9 (Version None)
Quarter: 2009Q4

REPORT INFORMATION
  Report Type: 
  Country: None (occurrence: None)
  Receive Date: 20091103
  Receipt Date: 20091019
  Transmission Date: 20100525
  Serious: Yes (Death, Hospitalization)
  Sender: FDA-Public Use
  Company Number: 02100-JPN-06-0604

PATIENT
  Age: 67 Year
  Sex: Male
  Weight: 63.4 kg

DRUGS (7)
  1. PLETAL [Suspect]
     Indication: CEREBRAL INFARCTION
     Dosage: 81 MG, QD ORAL
     Route: 048
     Dates: start: 20051019, end: 20061206
  2. MUCOSTA (REBAMIPIDE) [Concomitant]
  3. BASEN OD (VOGLIBOSE) [Concomitant]
  4. TRICHLORMETHIAZIDE [Concomitant]
  5. SERMION (NICERGOLINE) [Concomitant]
  6. RINDERON-VG (GENTAMICIN SULFATE, BETAMETHASONE VALERATE) [Concomitant]
  7. ASPIRIN [Suspect]

REACTIONS (10)
  - BLOOD PRESSURE DECREASED [None]
  - BODY TEMPERATURE INCREASED [None]
  - BRAIN HERNIATION [None]
  - CARDIOVASCULAR INSUFFICIENCY [None]
  - CEREBRAL HAEMORRHAGE [None]
  - DEPRESSED LEVEL OF CONSCIOUSNESS [None]
  - FAECES DISCOLOURED [None]
  - GASTROINTESTINAL HAEMORRHAGE [None]
  - HEART RATE DECREASED [None]
  - URINARY INCONTINENCE [None]
